FAERS Safety Report 21891778 (Version 4)
Quarter: 2023Q2

REPORT INFORMATION
  Report Type: Spontaneous
  Country: JP (occurrence: JP)
  Receive Date: 20230120
  Receipt Date: 20230515
  Transmission Date: 20230721
  Serious: Yes (Hospitalization, Disabling, Other)
  Sender: FDA-Public Use
  Company Number: JP-GLAXOSMITHKLINE-JP2023JPN006524

PATIENT

DRUGS (6)
  1. VALTREX [Suspect]
     Active Substance: VALACYCLOVIR HYDROCHLORIDE
     Indication: Herpes zoster
     Dosage: 3000 MG
     Route: 048
     Dates: start: 20220322, end: 20220328
  2. CARVEDILOL [Concomitant]
     Active Substance: CARVEDILOL
     Indication: Cardiac failure
     Dosage: 10 MG
     Route: 048
  3. AZOSEMIDE TABLET [Concomitant]
     Indication: Cardiac failure
     Dosage: 30 MG
     Route: 048
     Dates: start: 20220311, end: 20220328
  4. SPIRONOLACTONE [Concomitant]
     Active Substance: SPIRONOLACTONE
     Indication: Cardiac failure
     Dosage: 250 MG
     Route: 048
     Dates: start: 20220305, end: 20220328
  5. AZILVA TABLETS [Concomitant]
     Indication: Hypertension
     Dosage: 20 MG
     Route: 048
     Dates: end: 20220328
  6. ASPIRIN [Concomitant]
     Active Substance: ASPIRIN
     Indication: Myocardial ischaemia
     Dosage: 100 MG
     Route: 048
     Dates: end: 20220421

REACTIONS (7)
  - Toxic encephalopathy [Recovering/Resolving]
  - Renal impairment [Recovered/Resolved]
  - Acute kidney injury [Recovered/Resolved]
  - Altered state of consciousness [Recovering/Resolving]
  - Toxicity to various agents [Recovering/Resolving]
  - Oliguria [Unknown]
  - Dehydration [Recovering/Resolving]

NARRATIVE: CASE EVENT DATE: 20220325
